FAERS Safety Report 6238075-X (Version None)
Quarter: 2009Q2

REPORT INFORMATION
  Report Type: 
  Country: None (occurrence: None)
  Receive Date: 20090617
  Receipt Date: 20090603
  Transmission Date: 20091009
  Serious: Yes (Other)
  Sender: FDA-Public Use
  Company Number: DK-1169868

PATIENT

DRUGS (1)
  1. CIPRO HC [Suspect]
     Dosage: AURICULAR (OTIC)
     Route: 001

REACTIONS (2)
  - DEAFNESS UNILATERAL [None]
  - TYMPANIC MEMBRANE PERFORATION [None]
